FAERS Safety Report 9219632 (Version 4)
Quarter: 2016Q2

REPORT INFORMATION
  Report Type: Spontaneous
  Country: US (occurrence: US)
  Receive Date: 20130409
  Receipt Date: 20160428
  Transmission Date: 20160815
  Serious: Yes (Hospitalization, Disabling, Other)
  Sender: FDA-Public Use
  Company Number: US-009507513-1304USA003217

PATIENT
  Sex: Female

DRUGS (3)
  1. ALENDRONATE SODIUM. [Suspect]
     Active Substance: ALENDRONATE SODIUM
     Indication: OSTEOPOROSIS
     Dosage: 70 MG, UNKNOWN
     Route: 048
     Dates: start: 20090915, end: 20110722
  2. FOSAMAX [Suspect]
     Active Substance: ALENDRONATE SODIUM
     Indication: OSTEOPOROSIS
     Dosage: 70 MG, UNKNOWN
     Route: 048
     Dates: start: 20040102, end: 20060824
  3. FOSAMAX PLUS D [Suspect]
     Active Substance: ALENDRONATE SODIUM\CHOLECALCIFEROL
     Indication: OSTEOPOROSIS
     Dosage: 70 MG, UNKNOWN
     Route: 048
     Dates: start: 20070331, end: 20081114

REACTIONS (12)
  - Colitis ischaemic [Unknown]
  - Hypertension [Unknown]
  - Osteopenia [Unknown]
  - Paraesthesia [Unknown]
  - Femur fracture [Unknown]
  - Foot deformity [Unknown]
  - Gout [Unknown]
  - Aortic aneurysm [Unknown]
  - Migraine with aura [Unknown]
  - Hypercholesterolaemia [Unknown]
  - Fall [Unknown]
  - Osteoarthritis [Unknown]

NARRATIVE: CASE EVENT DATE: 2004
